FAERS Safety Report 18791242 (Version 2)
Quarter: 2021Q1

REPORT INFORMATION
  Report Type: Spontaneous
  Country: US (occurrence: US)
  Receive Date: 20210126
  Receipt Date: 20210303
  Transmission Date: 20210419
  Serious: No
  Sender: FDA-Public Use
  Company Number: US-TAKEDA-2021TUS004783

PATIENT
  Sex: Female
  Weight: 69 kg

DRUGS (2)
  1. DEXILANT [Suspect]
     Active Substance: DEXLANSOPRAZOLE
     Indication: GASTROOESOPHAGEAL REFLUX DISEASE
     Dosage: 60 MILLIGRAM, QD
     Route: 065
  2. DEXILANT [Suspect]
     Active Substance: DEXLANSOPRAZOLE
     Dosage: 40 MILLIGRAM, QD
     Route: 065

REACTIONS (7)
  - Dysphonia [Recovered/Resolved]
  - Sensation of foreign body [Unknown]
  - Inappropriate schedule of product administration [Unknown]
  - Incorrect product administration duration [Unknown]
  - Oropharyngeal pain [Unknown]
  - Sinusitis [Unknown]
  - Therapy interrupted [Unknown]
